FAERS Safety Report 23761265 (Version 2)
Quarter: 2024Q2

REPORT INFORMATION
  Report Type: Spontaneous
  Country: NL (occurrence: NL)
  Receive Date: 20240419
  Receipt Date: 20240606
  Transmission Date: 20240715
  Serious: Yes (Death, Other)
  Sender: FDA-Public Use
  Company Number: NL-ASTELLAS-2024US011269

PATIENT
  Age: 3 Year
  Sex: Male
  Weight: 14.9 kg

DRUGS (2)
  1. XOSPATA [Suspect]
     Active Substance: GILTERITINIB
     Indication: Acute myeloid leukaemia refractory
     Dosage: 1 DD 40 MG (FOR 2 DAYS)
     Route: 050
     Dates: start: 20240213, end: 20240214
  2. XOSPATA [Suspect]
     Active Substance: GILTERITINIB
     Dosage: 30 MG = 2 MG/KG/DAY WITH BODY WEIGHT OF 15 KG, PREPARED VIA PREPARATION PHARMACY FOR 12 DAYS)
     Route: 050
     Dates: start: 20240215, end: 20240226

REACTIONS (4)
  - Acute myeloid leukaemia recurrent [Fatal]
  - Off label use [Recovered/Resolved]
  - Product preparation error [Recovered/Resolved]
  - Product use issue [Unknown]

NARRATIVE: CASE EVENT DATE: 20240213
